FAERS Safety Report 6974440-0 (Version None)
Quarter: 2010Q3

REPORT INFORMATION
  Report Type: 
  Country: None (occurrence: None)
  Receive Date: 20100909
  Receipt Date: 20080611
  Transmission Date: 20110219
  Serious: No
  Sender: FDA-Public Use
  Company Number: US-WYE-H04451608

PATIENT
  Sex: Male
  Weight: 72.64 kg

DRUGS (3)
  1. PROTONIX [Suspect]
     Indication: GASTROOESOPHAGEAL REFLUX DISEASE
     Route: 048
     Dates: start: 20080401
  2. PROSCAR [Concomitant]
  3. ENALAPRIL [Concomitant]

REACTIONS (2)
  - DYSPHAGIA [None]
  - SALIVA ALTERED [None]
